FAERS Safety Report 4840227-8 (Version None)
Quarter: 2005Q4

REPORT INFORMATION
  Report Type: 
  Country: None (occurrence: None)
  Receive Date: 20051129
  Receipt Date: 20050929
  Transmission Date: 20060501
  Serious: Yes (Other)
  Sender: FDA-Public Use
  Company Number: US-MERCK-0510USA00255

PATIENT
  Age: 38 Year
  Sex: Female
  Weight: 115 kg

DRUGS (2)
  1. VIOXX [Suspect]
     Indication: OVARIAN DISORDER
     Route: 048
     Dates: start: 20020101
  2. VIOXX [Suspect]
     Indication: BACK PAIN
     Route: 048
     Dates: start: 20020101

REACTIONS (4)
  - CARDIAC DISORDER [None]
  - CEREBROVASCULAR ACCIDENT [None]
  - PRESCRIBED OVERDOSE [None]
  - THROMBOSIS [None]
